FAERS Safety Report 5692920-5 (Version None)
Quarter: 2008Q2

REPORT INFORMATION
  Report Type: 
  Country: None (occurrence: None)
  Receive Date: 20080326
  Receipt Date: 20070920
  Transmission Date: 20081010
  Serious: Yes (Life-Threatening)
  Sender: FDA-Public Use
  Company Number: 20070286

PATIENT
  Age: 58 Year
  Sex: Male

DRUGS (1)
  1. DEXFERRUM [Suspect]
     Dosage: 200 MG OVER 45 MIN INTRAVENOUS
     Route: 042
     Dates: start: 20070914, end: 20070914

REACTIONS (1)
  - ANAPHYLACTOID REACTION [None]
